FAERS Safety Report 8004912-1 (Version None)
Quarter: 2011Q4

REPORT INFORMATION
  Report Type: 
  Country: None (occurrence: None)
  Receive Date: 20111219
  Receipt Date: 20111212
  Transmission Date: 20120403
  Serious: Yes (Death, Life-Threatening, Hospitalization)
  Sender: FDA-Public Use
  Company Number: 2011SP004903

PATIENT
  Age: 46 Year
  Sex: Male
  Weight: 90 kg

DRUGS (20)
  1. FAMOTIDINE [Concomitant]
  2. TEMODAL [Suspect]
     Indication: RECURRENT CANCER
     Dosage: 75 MG/M2;QD;PO 150 MG/M2;QD;PO 200 MG/M2;QD;PO 150 MG/M2;QD;PO
     Route: 048
     Dates: start: 20060920, end: 20061031
  3. TEMODAL [Suspect]
     Indication: BRAIN STEM GLIOMA
     Dosage: 75 MG/M2;QD;PO 150 MG/M2;QD;PO 200 MG/M2;QD;PO 150 MG/M2;QD;PO
     Route: 048
     Dates: start: 20060920, end: 20061031
  4. TEMODAL [Suspect]
     Indication: RECURRENT CANCER
     Dosage: 75 MG/M2;QD;PO 150 MG/M2;QD;PO 200 MG/M2;QD;PO 150 MG/M2;QD;PO
     Route: 048
     Dates: start: 20061120, end: 20061124
  5. TEMODAL [Suspect]
     Indication: BRAIN STEM GLIOMA
     Dosage: 75 MG/M2;QD;PO 150 MG/M2;QD;PO 200 MG/M2;QD;PO 150 MG/M2;QD;PO
     Route: 048
     Dates: start: 20061120, end: 20061124
  6. TEMODAL [Suspect]
     Indication: RECURRENT CANCER
     Dosage: 75 MG/M2;QD;PO 150 MG/M2;QD;PO 200 MG/M2;QD;PO 150 MG/M2;QD;PO
     Route: 048
     Dates: start: 20061218, end: 20061222
  7. TEMODAL [Suspect]
     Indication: BRAIN STEM GLIOMA
     Dosage: 75 MG/M2;QD;PO 150 MG/M2;QD;PO 200 MG/M2;QD;PO 150 MG/M2;QD;PO
     Route: 048
     Dates: start: 20061218, end: 20061222
  8. TEMODAL [Suspect]
     Indication: RECURRENT CANCER
     Dosage: 75 MG/M2;QD;PO 150 MG/M2;QD;PO 200 MG/M2;QD;PO 150 MG/M2;QD;PO
     Route: 048
     Dates: start: 20070116, end: 20070120
  9. TEMODAL [Suspect]
     Indication: BRAIN STEM GLIOMA
     Dosage: 75 MG/M2;QD;PO 150 MG/M2;QD;PO 200 MG/M2;QD;PO 150 MG/M2;QD;PO
     Route: 048
     Dates: start: 20070116, end: 20070120
  10. TEMODAL [Suspect]
     Indication: RECURRENT CANCER
     Dosage: 75 MG/M2;QD;PO 150 MG/M2;QD;PO 200 MG/M2;QD;PO 150 MG/M2;QD;PO
     Route: 048
     Dates: start: 20070215, end: 20070219
  11. TEMODAL [Suspect]
     Indication: BRAIN STEM GLIOMA
     Dosage: 75 MG/M2;QD;PO 150 MG/M2;QD;PO 200 MG/M2;QD;PO 150 MG/M2;QD;PO
     Route: 048
     Dates: start: 20070215, end: 20070219
  12. TEMODAL [Suspect]
     Indication: RECURRENT CANCER
     Dosage: 75 MG/M2;QD;PO 150 MG/M2;QD;PO 200 MG/M2;QD;PO 150 MG/M2;QD;PO
     Route: 048
     Dates: start: 20070412, end: 20070416
  13. TEMODAL [Suspect]
     Indication: BRAIN STEM GLIOMA
     Dosage: 75 MG/M2;QD;PO 150 MG/M2;QD;PO 200 MG/M2;QD;PO 150 MG/M2;QD;PO
     Route: 048
     Dates: start: 20070412, end: 20070416
  14. TEMODAL [Suspect]
     Indication: RECURRENT CANCER
     Dosage: 75 MG/M2;QD;PO 150 MG/M2;QD;PO 200 MG/M2;QD;PO 150 MG/M2;QD;PO
     Route: 048
     Dates: start: 20070315, end: 20070319
  15. TEMODAL [Suspect]
     Indication: BRAIN STEM GLIOMA
     Dosage: 75 MG/M2;QD;PO 150 MG/M2;QD;PO 200 MG/M2;QD;PO 150 MG/M2;QD;PO
     Route: 048
     Dates: start: 20070315, end: 20070319
  16. TEMODAL [Suspect]
     Indication: RECURRENT CANCER
     Dosage: 75 MG/M2;QD;PO 150 MG/M2;QD;PO 200 MG/M2;QD;PO 150 MG/M2;QD;PO
     Route: 048
     Dates: start: 20080604, end: 20080608
  17. TEMODAL [Suspect]
     Indication: BRAIN STEM GLIOMA
     Dosage: 75 MG/M2;QD;PO 150 MG/M2;QD;PO 200 MG/M2;QD;PO 150 MG/M2;QD;PO
     Route: 048
     Dates: start: 20080604, end: 20080608
  18. TEMODAL [Suspect]
     Indication: RECURRENT CANCER
     Dosage: 75 MG/M2;QD;PO 150 MG/M2;QD;PO 200 MG/M2;QD;PO 150 MG/M2;QD;PO
     Route: 048
     Dates: start: 20080709, end: 20080811
  19. TEMODAL [Suspect]
     Indication: BRAIN STEM GLIOMA
     Dosage: 75 MG/M2;QD;PO 150 MG/M2;QD;PO 200 MG/M2;QD;PO 150 MG/M2;QD;PO
     Route: 048
     Dates: start: 20080709, end: 20080811
  20. DECADRON [Concomitant]

REACTIONS (8)
  - BRAIN STEM GLIOMA [None]
  - RESPIRATORY ARREST [None]
  - GRANULOCYTE COUNT DECREASED [None]
  - MALAISE [None]
  - MALNUTRITION [None]
  - LYMPHOCYTE COUNT DECREASED [None]
  - NEOPLASM PROGRESSION [None]
  - HYPOALBUMINAEMIA [None]
